FAERS Safety Report 4666130-4 (Version None)
Quarter: 2005Q2

REPORT INFORMATION
  Report Type: 
  Country: None (occurrence: None)
  Receive Date: 20050519
  Receipt Date: 20050512
  Transmission Date: 20051028
  Serious: Yes (Hospitalization)
  Sender: FDA-Public Use
  Company Number: US-BRISTOL-MYERS SQUIBB COMPANY-12967006

PATIENT
  Age: 53 Year
  Sex: Male
  Weight: 80 kg

DRUGS (5)
  1. CETUXIMAB [Suspect]
     Indication: NON-SMALL CELL LUNG CANCER
     Route: 042
     Dates: start: 20050502, end: 20050502
  2. CARBOPLATIN [Suspect]
     Indication: NON-SMALL CELL LUNG CANCER
     Dosage: AUC 6
     Route: 042
     Dates: start: 20050503, end: 20050503
  3. DOCETAXEL [Suspect]
     Indication: NON-SMALL CELL LUNG CANCER
     Route: 042
     Dates: start: 20050503, end: 20050503
  4. KLONOPIN [Concomitant]
     Indication: ANXIETY
     Dosage: QHS.
     Route: 048
  5. LORTAB [Concomitant]
     Indication: PAIN
     Dosage: Q4H PRN.
     Route: 048

REACTIONS (2)
  - DEHYDRATION [None]
  - NEUTROPENIA [None]
